FAERS Safety Report 12556461 (Version 1)
Quarter: 2016Q3

REPORT INFORMATION
  Report Type: Spontaneous
  Country: US (occurrence: None)
  Receive Date: 20160713
  Receipt Date: 20160713
  Transmission Date: 20161109
  Serious: Yes (Life-Threatening, Hospitalization)
  Sender: FDA-Public Use
  Company Number: None

PATIENT
  Age: 62 Year
  Sex: Female
  Weight: 65.32 kg

DRUGS (9)
  1. GABAPENTIN. [Concomitant]
     Active Substance: GABAPENTIN
  2. FLUOXETINE [Suspect]
     Active Substance: FLUOXETINE HYDROCHLORIDE
     Indication: STENOSIS
     Dosage: 1 A DAY
     Route: 048
  3. CARISOPRODOL. [Concomitant]
     Active Substance: CARISOPRODOL
  4. MULTIVITAMIN [Concomitant]
     Active Substance: VITAMINS
  5. FLUOXETINE [Suspect]
     Active Substance: FLUOXETINE HYDROCHLORIDE
     Indication: SPINAL OPERATION
     Dosage: 1 A DAY
     Route: 048
  6. TRAMADOL. [Suspect]
     Active Substance: TRAMADOL
     Dosage: UP TO 4
     Route: 048
  7. KRILL OIL [Concomitant]
     Active Substance: DIETARY SUPPLEMENT
  8. NORVAC [Concomitant]
     Active Substance: AMLODIPINE BESYLATE
  9. MELOXICAM. [Suspect]
     Active Substance: MELOXICAM
     Dosage: 1 A DAY
     Route: 048

REACTIONS (8)
  - Drug interaction [None]
  - Fatigue [None]
  - Alcohol use [None]
  - Hallucination [None]
  - Aphasia [None]
  - Activities of daily living impaired [None]
  - Gastrointestinal haemorrhage [None]
  - Toxicity to various agents [None]

NARRATIVE: CASE EVENT DATE: 20160523
